FAERS Safety Report 12484857 (Version 1)
Quarter: 2016Q2

REPORT INFORMATION
  Report Type: Spontaneous
  Country: US (occurrence: None)
  Receive Date: 20160620
  Receipt Date: 20160620
  Transmission Date: 20160815
  Serious: Yes (Disabling)
  Sender: FDA-Public Use
  Company Number: None

PATIENT
  Age: 30 Year
  Sex: Female
  Weight: 68.04 kg

DRUGS (1)
  1. HUMIRA [Suspect]
     Active Substance: ADALIMUMAB
     Indication: PSORIATIC ARTHROPATHY
     Route: 058
     Dates: start: 20160215, end: 20160606

REACTIONS (6)
  - Pustular psoriasis [None]
  - Myalgia [None]
  - Hepatic enzyme increased [None]
  - Pleurisy [None]
  - Sensation of foreign body [None]
  - Arthritis [None]

NARRATIVE: CASE EVENT DATE: 20160512
